FAERS Safety Report 8591010-1 (Version None)
Quarter: 2012Q3

REPORT INFORMATION
  Report Type: 
  Country: None (occurrence: None)
  Receive Date: 20120813
  Receipt Date: 20120807
  Transmission Date: 20120928
  Serious: Yes (Hospitalization)
  Sender: FDA-Public Use
  Company Number: JP-VERTEX PHARMACEUTICALS INC.-AE-2012-011885

PATIENT
  Age: 64 Year
  Sex: Male

DRUGS (9)
  1. PEGINTERFERON ALFA-2B [Concomitant]
     Indication: HEPATITIS C
     Route: 058
     Dates: start: 20120508, end: 20120621
  2. RIBAVIRIN [Concomitant]
     Route: 048
     Dates: start: 20120522, end: 20120528
  3. ANTEBATE [Concomitant]
     Route: 061
     Dates: start: 20120508
  4. HIRUDOID [Concomitant]
     Route: 061
     Dates: start: 20120508
  5. TELAVIC (TELAPREVIR) [Suspect]
     Indication: HEPATITIS C
     Route: 048
     Dates: start: 20120508, end: 20120611
  6. RIBAVIRIN [Concomitant]
     Indication: HEPATITIS C
     Route: 048
     Dates: start: 20120508, end: 20120521
  7. RIBAVIRIN [Concomitant]
     Route: 048
     Dates: start: 20120529, end: 20120621
  8. TELAVIC (TELAPREVIR) [Suspect]
     Route: 048
     Dates: start: 20120612, end: 20120621
  9. LOCOID [Concomitant]
     Route: 061
     Dates: start: 20120508

REACTIONS (1)
  - RASH [None]
